FAERS Safety Report 13344663 (Version 1)
Quarter: 2017Q1

REPORT INFORMATION
  Report Type: Spontaneous
  Country: FR (occurrence: FR)
  Receive Date: 20170317
  Receipt Date: 20170317
  Transmission Date: 20170428
  Serious: Yes (Death, Hospitalization, Other)
  Sender: FDA-Public Use
  Company Number: FR-ACCORD-048932

PATIENT
  Age: 66 Year
  Sex: Male

DRUGS (8)
  1. TADENAN [Concomitant]
     Active Substance: PYGEUM
     Route: 048
  2. ZOPHREN [Concomitant]
     Active Substance: ONDANSETRON
     Route: 048
  3. ONDANSETRON [Concomitant]
     Active Substance: ONDANSETRON
     Indication: PREMEDICATION
     Route: 042
     Dates: start: 20161226, end: 20161230
  4. FLUOROURACIL ACCORD [Suspect]
     Active Substance: FLUOROURACIL
     Indication: OESOPHAGEAL SQUAMOUS CELL CARCINOMA
     Dosage: 6100 MG IN 5 DAYS, EQUIVALENT TO 150 MG/M2 DAILY
     Route: 042
     Dates: start: 20161226, end: 20161230
  5. VALSARTAN. [Concomitant]
     Active Substance: VALSARTAN
     Indication: HYPERTENSION
     Route: 048
  6. DOCETAXEL ACCORD [Suspect]
     Active Substance: DOCETAXEL
     Indication: OESOPHAGEAL SQUAMOUS CELL CARCINOMA
     Dosage: 98 MG IN ONE SINGLE INTAKE, EQUIVALENT TO?60 MG/M2
     Route: 042
     Dates: start: 20161226, end: 20161226
  7. METHYLPREDNISOLONE. [Concomitant]
     Active Substance: METHYLPREDNISOLONE
     Indication: PREMEDICATION
     Route: 042
     Dates: start: 20161226, end: 20161230
  8. CISPLATIN ACCORD [Suspect]
     Active Substance: CISPLATIN
     Indication: OESOPHAGEAL SQUAMOUS CELL CARCINOMA
     Dosage: EQUIVALENT TO 20 MG/M2 ONCE DAILY
     Route: 042
     Dates: start: 20161226, end: 20161230

REACTIONS (5)
  - Septic shock [Unknown]
  - Colonic abscess [Fatal]
  - Renal failure [Unknown]
  - Enteritis [Fatal]
  - Pancytopenia [Not Recovered/Not Resolved]

NARRATIVE: CASE EVENT DATE: 20161231
